FAERS Safety Report 17899589 (Version 2)
Quarter: 2020Q3

REPORT INFORMATION
  Report Type: Spontaneous
  Country: US (occurrence: US)
  Receive Date: 20200616
  Receipt Date: 20200821
  Transmission Date: 20201103
  Serious: No
  Sender: FDA-Public Use
  Company Number: US-LEO PHARMA-330004

PATIENT
  Age: 79 Year
  Sex: Female

DRUGS (3)
  1. SKINOREN GEL [Suspect]
     Active Substance: AZELAIC ACID
     Indication: ERYTHEMA
  2. SKINOREN GEL [Suspect]
     Active Substance: AZELAIC ACID
     Indication: PAPULE
  3. SKINOREN GEL [Suspect]
     Active Substance: AZELAIC ACID
     Indication: ACNE
     Route: 061

REACTIONS (5)
  - Application site dryness [Not Recovered/Not Resolved]
  - Inappropriate schedule of product administration [Unknown]
  - Application site pain [Recovered/Resolved]
  - Application site exfoliation [Not Recovered/Not Resolved]
  - Application site acne [Not Recovered/Not Resolved]

NARRATIVE: CASE EVENT DATE: 20200605
